FAERS Safety Report 9696844 (Version 2)
Quarter: 2015Q3

REPORT INFORMATION
  Report Type: Spontaneous
  Country: US (occurrence: US)
  Receive Date: 20131119
  Receipt Date: 20150803
  Transmission Date: 20151125
  Serious: No
  Sender: FDA-Public Use
  Company Number: US-GILEAD-2007-0013474

PATIENT
  Age: 64 Year
  Sex: Female

DRUGS (16)
  1. DEMECLOCYCLINE [Concomitant]
     Active Substance: DEMECLOCYCLINE
     Route: 048
  2. PROAIR HFA [Concomitant]
     Active Substance: ALBUTEROL SULFATE
     Route: 055
  3. DIGITEK [Concomitant]
     Active Substance: DIGOXIN
     Route: 048
  4. KLOR-CON [Concomitant]
     Active Substance: POTASSIUM CHLORIDE
     Route: 048
  5. LETAIRIS [Suspect]
     Active Substance: AMBRISENTAN
     Indication: PULMONARY ARTERIAL HYPERTENSION
     Route: 048
     Dates: start: 20070916
  6. REVATIO [Concomitant]
     Active Substance: SILDENAFIL CITRATE
     Route: 048
  7. NORVASC [Concomitant]
     Active Substance: AMLODIPINE BESYLATE
     Route: 048
  8. LASIX [Concomitant]
     Active Substance: FUROSEMIDE
     Route: 048
  9. FLOVENT [Concomitant]
     Active Substance: FLUTICASONE PROPIONATE
     Route: 055
  10. PROLASTIN [Concomitant]
     Active Substance: .ALPHA.1-PROTEINASE INHIBITOR HUMAN
     Route: 042
  11. FORADIL [Concomitant]
     Active Substance: FORMOTEROL FUMARATE
     Route: 055
  12. OMEPRAZOLE. [Concomitant]
     Active Substance: OMEPRAZOLE
     Route: 048
  13. WARFARIN [Concomitant]
     Active Substance: WARFARIN
     Route: 048
  14. PREDNISONE. [Concomitant]
     Active Substance: PREDNISONE
     Dosage: TAPER
  15. ZYRTEC [Concomitant]
     Active Substance: CETIRIZINE HYDROCHLORIDE
     Route: 048
  16. HYDROCORTISONE. [Concomitant]
     Active Substance: HYDROCORTISONE

REACTIONS (2)
  - Tremor [Unknown]
  - Dyspnoea [Unknown]

NARRATIVE: CASE EVENT DATE: 200709
